FAERS Safety Report 5528622-5 (Version None)
Quarter: 2007Q4

REPORT INFORMATION
  Report Type: 
  Country: None (occurrence: None)
  Receive Date: 20071109
  Receipt Date: 20070327
  Transmission Date: 20080405
  Serious: Yes (Other)
  Sender: FDA-Public Use
  Company Number: PHEH2007US03626

PATIENT
  Age: 58 Year
  Sex: Female
  Weight: 60.8 kg

DRUGS (7)
  1. EESTRADERM(ESTRADIOL) TRANS-THERAPEUTIC-SYSTEM [Suspect]
     Indication: MENOPAUSE
     Dosage: 0.05 %, TRANSDERMAL
     Route: 062
     Dates: start: 19980201, end: 19981201
  2. PREMPRO [Suspect]
     Indication: MENOPAUSE
     Dosage: 0.625/2.5 MG TABLET, ORAL ; 0.625/2.5 MG TABLET, ORAL
     Route: 048
     Dates: start: 19960601, end: 19961101
  3. PREMPRO [Suspect]
     Indication: MENOPAUSE
     Dosage: 0.625/2.5 MG TABLET, ORAL ; 0.625/2.5 MG TABLET, ORAL
     Route: 048
     Dates: start: 19971001, end: 19980101
  4. PREMPHASE (PREMARIN;CYCRIN 14/14) [Suspect]
     Indication: MENOPAUSE
     Dates: start: 19960201, end: 19960601
  5. PREMPHASE (PREMARIN;CYCRIN 14/14) [Suspect]
     Indication: MENOPAUSE
     Dates: end: 19970301
  6. ESTRATAB [Suspect]
     Indication: VAGINAL HAEMORRHAGE
     Dosage: 0.625 MG
     Dates: start: 19990601
  7. PROMETRIUM [Suspect]
     Indication: VAGINAL HAEMORRHAGE
     Dosage: 100 MG, QD
     Dates: start: 19990601

REACTIONS (17)
  - ALOPECIA [None]
  - ANXIETY [None]
  - BREAST CANCER [None]
  - BREAST MASS [None]
  - BREAST MICROCALCIFICATION [None]
  - CERVICAL CYST [None]
  - ENDOMETRIAL HYPERTROPHY [None]
  - INJURY [None]
  - INTERVERTEBRAL DISC DEGENERATION [None]
  - MALIGNANT BREAST LUMP REMOVAL [None]
  - MASS [None]
  - MASTECTOMY [None]
  - OSTEOARTHRITIS [None]
  - OVARIAN CYST [None]
  - RADIOTHERAPY [None]
  - UTERINE LEIOMYOMA [None]
  - VAGINAL HAEMORRHAGE [None]
